FAERS Safety Report 4372041-4 (Version None)
Quarter: 2004Q2

REPORT INFORMATION
  Report Type: 
  Country: None (occurrence: None)
  Receive Date: 20040602
  Receipt Date: 20040528
  Transmission Date: 20050107
  Serious: Yes (Death)
  Sender: FDA-Public Use
  Company Number: TCI2004A02171

PATIENT
  Age: 88 Year
  Sex: Female

DRUGS (4)
  1. ACTOS [Suspect]
     Indication: DIABETES MELLITUS
     Dosage: 15 MG (15 MG, 1 IN 1 D) PER ORAL
     Route: 048
     Dates: start: 20040506, end: 20040506
  2. VALSARTAN [Concomitant]
  3. AMLODIPINE BESYLATE [Concomitant]
  4. DIGOXIN [Concomitant]

REACTIONS (3)
  - CARDIAC FAILURE [None]
  - CHOKING SENSATION [None]
  - LOSS OF CONSCIOUSNESS [None]
